FAERS Safety Report 5263110-5 (Version None)
Quarter: 2007Q1

REPORT INFORMATION
  Report Type: 
  Country: None (occurrence: None)
  Receive Date: 20070312
  Receipt Date: 20070301
  Transmission Date: 20070707
  Serious: Yes (Hospitalization)
  Sender: FDA-Public Use
  Company Number: US-MERCK-0703USA01393

PATIENT
  Age: 56 Year
  Sex: Female

DRUGS (3)
  1. INDOCIN [Suspect]
     Indication: PAIN
     Route: 048
     Dates: start: 20030101, end: 20030910
  2. INDOCIN [Suspect]
     Indication: SWELLING
     Route: 048
     Dates: start: 20030101, end: 20030910
  3. [THERAPY UNSPECIFIED] [Concomitant]
     Route: 065

REACTIONS (7)
  - BRAIN NATRIURETIC PEPTIDE INCREASED [None]
  - GASTROOESOPHAGEAL REFLUX DISEASE [None]
  - NON-CARDIAC CHEST PAIN [None]
  - OESOPHAGEAL DISORDER [None]
  - RENAL IMPAIRMENT [None]
  - STOMACH DISCOMFORT [None]
  - VENTRICULAR HYPERTROPHY [None]
